FAERS Safety Report 5598052-9 (Version None)
Quarter: 2008Q1

REPORT INFORMATION
  Report Type: 
  Country: None (occurrence: None)
  Receive Date: 20080116
  Receipt Date: 20080107
  Transmission Date: 20080703
  Serious: Yes (Life-Threatening)
  Sender: FDA-Public Use
  Company Number: 100#01#2008-00125

PATIENT
  Age: 42 Year
  Sex: Female

DRUGS (2)
  1. AZITHROMYCIN [Suspect]
     Indication: PNEUMONIA
     Dosage: 500 MG INTRAVENOUS (NOT OTHERWISE SPECIFIED)
     Dates: start: 20071222, end: 20071223
  2. ENOXAPARIN SODIUM [Concomitant]

REACTIONS (7)
  - DYSPNOEA [None]
  - HYPERHIDROSIS [None]
  - HYPOTENSION [None]
  - MALAISE [None]
  - NAUSEA [None]
  - PALLOR [None]
  - VOMITING [None]
